FAERS Safety Report 8139288-2 (Version None)
Quarter: 2012Q1

REPORT INFORMATION
  Report Type: 
  Country: None (occurrence: None)
  Receive Date: 20120215
  Receipt Date: 20120208
  Transmission Date: 20120608
  Serious: Yes (Hospitalization, Other)
  Sender: FDA-Public Use
  Company Number: BR-ABBOTT-10P-020-0689617-00

PATIENT
  Sex: Male
  Weight: 2.43 kg

DRUGS (2)
  1. HUMIRA [Suspect]
     Route: 063
  2. HUMIRA [Suspect]
     Indication: MATERNAL EXPOSURE TIMING UNSPECIFIED
     Route: 064

REACTIONS (7)
  - EXPOSURE DURING BREAST FEEDING [None]
  - FOETAL EXPOSURE DURING PREGNANCY [None]
  - BLOOD GLUCOSE DECREASED [None]
  - CYANOSIS [None]
  - FEEDING DISORDER NEONATAL [None]
  - PREMATURE BABY [None]
  - ASTHENIA [None]
